FAERS Safety Report 5474971-9 (Version None)
Quarter: 2007Q3

REPORT INFORMATION
  Report Type: 
  Country: None (occurrence: None)
  Receive Date: 20070831
  Receipt Date: 20070516
  Transmission Date: 20080115
  Serious: No
  Sender: FDA-Public Use
  Company Number: 241626

PATIENT
  Age: 81 Year
  Sex: Female

DRUGS (10)
  1. LUCENTIS [Suspect]
     Indication: DRUG USE FOR UNKNOWN INDICATION
     Dosage: INTRAVITREAL
     Dates: start: 20070515
  2. COUMADIN [Concomitant]
  3. TAMBOCOR [Concomitant]
  4. NORVASC [Concomitant]
  5. ..ESTRIL (LISINOPRIL) [Concomitant]
  6. FOSAMAX [Concomitant]
  7. VITORUM (GENERIC COMPONENT (S) ) [Concomitant]
  8. GLUCOPHAGE [Concomitant]
  9. GLYBURIDE [Concomitant]
  10. ASTHMAHALER (EPINEPHRINE) [Concomitant]

REACTIONS (3)
  - EYE IRRITATION [None]
  - VISUAL DISTURBANCE [None]
  - VITREOUS FLOATERS [None]
